FAERS Safety Report 16181859 (Version 3)
Quarter: 2019Q2

REPORT INFORMATION
  Report Type: Report from Study
  Country: IE (occurrence: IE)
  Receive Date: 20190410
  Receipt Date: 20190501
  Transmission Date: 20190711
  Serious: Yes (Other)
  Sender: FDA-Public Use
  Company Number: IE-SHIRE-IE201911689

PATIENT

DRUGS (6)
  1. VITAMIN D NOS [Concomitant]
     Active Substance: VITAMIN D NOS
     Indication: PRODUCT USED FOR UNKNOWN INDICATION
  2. PRIMACINE [Concomitant]
     Indication: PRODUCT USED FOR UNKNOWN INDICATION
  3. ABIDEC [Concomitant]
     Indication: PRODUCT USED FOR UNKNOWN INDICATION
  4. FIORINAL [Concomitant]
     Active Substance: ASPIRIN\BUTALBITAL\CAFFEINE
     Indication: PRODUCT USED FOR UNKNOWN INDICATION
  5. ELAPRASE [Suspect]
     Active Substance: IDURSULFASE
     Indication: MUCOPOLYSACCHARIDOSIS II
     Dosage: 24 MG/30 MG, 1X/2WKS
     Route: 042
     Dates: start: 20120214
  6. ELAPRASE [Suspect]
     Active Substance: IDURSULFASE
     Dosage: 24 MG/30 MG, 1X/2WKS
     Route: 042
     Dates: start: 20120214

REACTIONS (1)
  - Lower respiratory tract infection [Recovered/Resolved]

NARRATIVE: CASE EVENT DATE: 20190403
